FAERS Safety Report 22629255 (Version 1)
Quarter: 2023Q2

REPORT INFORMATION
  Report Type: Spontaneous
  Country: US (occurrence: US)
  Receive Date: 20230622
  Receipt Date: 20230622
  Transmission Date: 20230721
  Serious: No
  Sender: FDA-Public Use
  Company Number: US-ELI_LILLY_AND_COMPANY-US202306014104

PATIENT
  Sex: Female

DRUGS (2)
  1. HUMALOG [Suspect]
     Active Substance: INSULIN LISPRO
     Indication: Type 2 diabetes mellitus
     Dosage: 35 U, DAILY (10 UNITS BREAKFAST, 10 UNITS LUNCH, 15 UNITS DINNER)
     Route: 065
  2. HUMALOG [Suspect]
     Active Substance: INSULIN LISPRO
     Dosage: 35 U, DAILY (10 UNITS BREAKFAST, 10 UNITS LUNCH, 15 UNITS DINNER)
     Route: 065

REACTIONS (1)
  - Gait disturbance [Recovering/Resolving]
